FAERS Safety Report 5050399-0 (Version None)
Quarter: 2006Q3

REPORT INFORMATION
  Report Type: 
  Country: None (occurrence: None)
  Receive Date: 20060707
  Receipt Date: 20060627
  Transmission Date: 20061208
  Serious: No
  Sender: FDA-Public Use
  Company Number: 2006-144804-NL

PATIENT
  Age: 28 Year
  Sex: Female

DRUGS (6)
  1. MIRTAZAPINE [Suspect]
     Indication: ANXIETY
     Dosage: 45 MG
     Route: 048
     Dates: start: 20060321, end: 20060407
  2. MIRTAZAPINE [Suspect]
     Indication: DEPRESSION
     Dosage: 45 MG
     Route: 048
     Dates: start: 20060321, end: 20060407
  3. ACAMPROSATE [Concomitant]
  4. DISULPIRAM [Concomitant]
  5. CHLORDIAZEPOXIDE [Concomitant]
  6. ESCITALOPRAM OXALATE [Concomitant]

REACTIONS (2)
  - EPILEPSY [None]
  - LOSS OF CONSCIOUSNESS [None]
